FAERS Safety Report 17860047 (Version 3)
Quarter: 2020Q3

REPORT INFORMATION
  Report Type: Report from Study
  Country: CO (occurrence: CO)
  Receive Date: 20200604
  Receipt Date: 20200813
  Transmission Date: 20201103
  Serious: Yes (Life-Threatening, Hospitalization)
  Sender: FDA-Public Use
  Company Number: PHHY2018CO009551

PATIENT
  Age: 14 Year
  Sex: Male
  Weight: 46 kg

DRUGS (4)
  1. OMNITROPE [Suspect]
     Active Substance: SOMATROPIN
     Indication: SMALL FOR DATES BABY
  2. OMNITROPE [Suspect]
     Active Substance: SOMATROPIN
     Indication: GROWTH HORMONE DEFICIENCY
     Dosage: 2.0 MG, QD
     Route: 058
     Dates: start: 20171120
  3. RISPERIDONE. [Suspect]
     Active Substance: RISPERIDONE
     Indication: PRODUCT USED FOR UNKNOWN INDICATION
     Dosage: 1 MG, QD (HALF TABLET AT NIGHT)
     Route: 065
     Dates: start: 20200413
  4. RISPERIDONE. [Suspect]
     Active Substance: RISPERIDONE
     Dosage: UNK (DOSE DECREASED)
     Route: 048

REACTIONS (13)
  - Dysphemia [Not Recovered/Not Resolved]
  - Disturbance in attention [Unknown]
  - Hypoaesthesia [Not Recovered/Not Resolved]
  - Suicide attempt [Unknown]
  - Scar [Unknown]
  - Aggression [Unknown]
  - Chest pain [Not Recovered/Not Resolved]
  - Mental disorder [Unknown]
  - Bipolar I disorder [Not Recovered/Not Resolved]
  - Headache [Unknown]
  - Skin laceration [Not Recovered/Not Resolved]
  - Intentional self-injury [Not Recovered/Not Resolved]
  - Depression [Not Recovered/Not Resolved]

NARRATIVE: CASE EVENT DATE: 20200412
